FAERS Safety Report 14593650 (Version 3)
Quarter: 2018Q2

REPORT INFORMATION
  Report Type: Spontaneous
  Country: US (occurrence: US)
  Receive Date: 20180302
  Receipt Date: 20180418
  Transmission Date: 20180711
  Serious: Yes (Death, Hospitalization, Other)
  Sender: FDA-Public Use
  Company Number: US-009507513-1802USA011373

PATIENT
  Age: 75 Year
  Sex: Female

DRUGS (2)
  1. SINEMET [Suspect]
     Active Substance: CARBIDOPA\LEVODOPA
     Indication: PARKINSON^S DISEASE
     Dosage: UNK
     Route: 048
     Dates: start: 2011
  2. SINEMET CR [Suspect]
     Active Substance: CARBIDOPA\LEVODOPA
     Indication: PARKINSON^S DISEASE
     Dosage: UNK
     Route: 048

REACTIONS (7)
  - Dyskinesia [Unknown]
  - Seizure [Unknown]
  - Pneumonia [Unknown]
  - Parkinson^s disease [Unknown]
  - Somnolence [Unknown]
  - Drug dependence [Unknown]
  - Death [Fatal]

NARRATIVE: CASE EVENT DATE: 201502
